FAERS Safety Report 4372452-7 (Version None)
Quarter: 2004Q2

REPORT INFORMATION
  Report Type: 
  Country: None (occurrence: None)
  Receive Date: 20040603
  Receipt Date: 20040517
  Transmission Date: 20050107
  Serious: Yes (Hospitalization)
  Sender: FDA-Public Use
  Company Number: 2004-05-1135

PATIENT
  Age: 72 Year
  Sex: Male

DRUGS (2)
  1. CELESTONE [Suspect]
     Indication: ERYTHEMA
     Dosage: SEE IMAGE
     Route: 062
     Dates: start: 20030415, end: 20040101
  2. CELESTONE [Suspect]
     Indication: ERYTHEMA
     Dosage: SEE IMAGE
     Route: 062
     Dates: start: 20040201

REACTIONS (4)
  - ADRENAL INSUFFICIENCY [None]
  - ANOREXIA [None]
  - HYPOGLYCAEMIA [None]
  - NASOPHARYNGITIS [None]
